FAERS Safety Report 13521356 (Version 1)
Quarter: 2017Q2

REPORT INFORMATION
  Report Type: Spontaneous
  Country: US (occurrence: US)
  Receive Date: 20170508
  Receipt Date: 20170508
  Transmission Date: 20170830
  Serious: No
  Sender: FDA-Public Use
  Company Number: US-PFIZER INC-2017199376

PATIENT
  Age: 40 Year
  Sex: Male
  Weight: 106.59 kg

DRUGS (4)
  1. SOMAVERT [Suspect]
     Active Substance: PEGVISOMANT
     Indication: ACROMEGALY
     Dosage: 10 MG, 1X/DAY (10MG INJECTION SUBCUTANEOUSLY ONCE DAILY)
     Route: 058
     Dates: start: 201703, end: 20170429
  2. OCTREOTIDE. [Concomitant]
     Active Substance: OCTREOTIDE
     Dosage: 30 MG, MONTHLY (30MG INJECTABLE)
  3. OCTREOTIDE. [Concomitant]
     Active Substance: OCTREOTIDE
     Indication: ACROMEGALY
     Dosage: A LOW DOSE
     Dates: start: 2015
  4. CABERGOLINE. [Concomitant]
     Active Substance: CABERGOLINE
     Indication: ACROMEGALY
     Dosage: UNK
     Dates: start: 2016

REACTIONS (1)
  - Drug effect incomplete [Unknown]
